FAERS Safety Report 8911811 (Version 2)
Quarter: 2013Q4

REPORT INFORMATION
  Report Type: Spontaneous
  Country: US (occurrence: US)
  Receive Date: 20121115
  Receipt Date: 20131126
  Transmission Date: 20140711
  Serious: Yes (Other)
  Sender: FDA-Public Use
  Company Number: US-GLAXOSMITHKLINE-A1001080A

PATIENT
  Age: 47 Year
  Sex: Female

DRUGS (5)
  1. PROMACTA [Suspect]
     Indication: THROMBOCYTOPENIA
     Dosage: 25MG PER DAY
     Route: 048
  2. ROXICODONE [Concomitant]
  3. VALIUM [Concomitant]
  4. PRILOSEC [Concomitant]
  5. CIPRO [Concomitant]

REACTIONS (4)
  - Kidney infection [Unknown]
  - Tooth extraction [Unknown]
  - Tooth disorder [Unknown]
  - Dental prosthesis user [Unknown]
